FAERS Safety Report 23502055 (Version 4)
Quarter: 2024Q3

REPORT INFORMATION
  Report Type: Spontaneous
  Country: US (occurrence: US)
  Receive Date: 20240208
  Receipt Date: 20240902
  Transmission Date: 20241017
  Serious: No
  Sender: BRISTOL MYERS SQUIBB
  Company Number: US-BRISTOL-MYERS SQUIBB COMPANY-2024-020729

PATIENT
  Age: 76 Year
  Sex: Male

DRUGS (2)
  1. REVLIMID [Suspect]
     Active Substance: LENALIDOMIDE
     Indication: Plasmacytoma
     Route: 048
  2. DEXAMETHASONE [Suspect]
     Active Substance: DEXAMETHASONE
     Indication: Product used for unknown indication

REACTIONS (8)
  - Muscle spasms [Unknown]
  - Constipation [Unknown]
  - Asthenia [Unknown]
  - Full blood count decreased [Unknown]
  - Off label use [Unknown]
  - COVID-19 [Recovered/Resolved]
  - White blood cell count decreased [Unknown]
  - Insomnia [Unknown]
